FAERS Safety Report 5571138-0 (Version None)
Quarter: 2007Q4

REPORT INFORMATION
  Report Type: 
  Country: None (occurrence: None)
  Receive Date: 20071221
  Receipt Date: 20071210
  Transmission Date: 20080405
  Serious: Yes (Hospitalization)
  Sender: FDA-Public Use
  Company Number: IL-ROCHE-534829

PATIENT
  Age: 16 Year
  Sex: Male

DRUGS (4)
  1. ROACCUTANE [Suspect]
     Indication: ACNE
     Route: 065
     Dates: start: 20070801, end: 20071101
  2. ROACCUTANE [Suspect]
     Route: 065
     Dates: start: 20071101, end: 20071201
  3. ROACCUTANE [Suspect]
     Route: 065
     Dates: start: 20071201
  4. RITALIN [Concomitant]

REACTIONS (1)
  - PSYCHOSOMATIC DISEASE [None]
